FAERS Safety Report 7679381-1 (Version None)
Quarter: 2011Q3

REPORT INFORMATION
  Report Type: 
  Country: None (occurrence: None)
  Receive Date: 20110812
  Receipt Date: 20110801
  Transmission Date: 20111222
  Serious: Yes (Other)
  Sender: FDA-Public Use
  Company Number: PHHY2011DE69792

PATIENT
  Sex: Male

DRUGS (1)
  1. FORADIL [Suspect]
     Dosage: 12 UG, UNK
     Dates: start: 19990101, end: 20110101

REACTIONS (2)
  - CIRCULATORY COLLAPSE [None]
  - PNEUMOTHORAX [None]
